FAERS Safety Report 8502641-9 (Version None)
Quarter: 2012Q3

REPORT INFORMATION
  Report Type: 
  Country: None (occurrence: None)
  Receive Date: 20120702
  Receipt Date: 20120614
  Transmission Date: 20120928
  Serious: Yes (Hospitalization)
  Sender: FDA-Public Use
  Company Number: BWILLS06142012

PATIENT
  Age: 68 Year
  Sex: Female

DRUGS (1)
  1. SSS BUG GUARD EXPEDITION SPF 30 AEROSOL SPRAY [Suspect]

REACTIONS (4)
  - SYNCOPE [None]
  - TREMOR [None]
  - COUGH [None]
  - RETCHING [None]
